FAERS Safety Report 19726660 (Version 1)
Quarter: 2021Q3

REPORT INFORMATION
  Report Type: Spontaneous
  Country: US (occurrence: US)
  Receive Date: 20210820
  Receipt Date: 20210820
  Transmission Date: 20211014
  Serious: Yes (Disabling)
  Sender: FDA-Public Use
  Company Number: None

PATIENT
  Age: 10 Year
  Sex: Male
  Weight: 35.1 kg

DRUGS (3)
  1. SINGULAIR [Suspect]
     Active Substance: MONTELUKAST SODIUM
     Indication: ASTHMA
     Dosage: ?          QUANTITY:1 TABLET(S);?
     Route: 048
     Dates: start: 20180428, end: 20210617
  2. QVAR [Concomitant]
     Active Substance: BECLOMETHASONE DIPROPIONATE
  3. ZYRTEC [Concomitant]
     Active Substance: CETIRIZINE HYDROCHLORIDE

REACTIONS (11)
  - Anger [None]
  - Behaviour disorder [None]
  - Disturbance in social behaviour [None]
  - Attention deficit hyperactivity disorder [None]
  - Social (pragmatic) communication disorder [None]
  - Product complaint [None]
  - Autism spectrum disorder [None]
  - Affective disorder [None]
  - Frustration tolerance decreased [None]
  - Aggression [None]
  - Generalised anxiety disorder [None]

NARRATIVE: CASE EVENT DATE: 20210617
